FAERS Safety Report 21599752 (Version 1)
Quarter: 2022Q4

REPORT INFORMATION
  Report Type: Spontaneous
  Country: PT (occurrence: PT)
  Receive Date: 20221115
  Receipt Date: 20221115
  Transmission Date: 20230112
  Serious: Yes (Other)
  Sender: FDA-Public Use
  Company Number: PT-MYLANLABS-2022M1090720

PATIENT
  Age: 83 Year
  Sex: Male

DRUGS (16)
  1. ROPINIROLE [Interacting]
     Active Substance: ROPINIROLE
     Indication: Hypertension
     Dosage: 1.5 MILLIGRAM, ONCE A DAY (0.5 MILLIGRAM, TID)
     Route: 065
  2. ROPINIROLE [Interacting]
     Active Substance: ROPINIROLE
     Dosage: 1 MILLIGRAM, ONCE A DAY (0.5 MILLIGRAM, 2 TIMES A DAY )
     Route: 065
  3. FINASTERIDE [Interacting]
     Active Substance: FINASTERIDE
     Indication: Hypertension
     Dosage: UNK
     Route: 065
  4. LERCANIDIPINE [Interacting]
     Active Substance: LERCANIDIPINE
     Indication: Hypertension
     Dosage: UNK
     Route: 065
  5. CLEBOPRIDE [Interacting]
     Active Substance: CLEBOPRIDE
     Indication: Dyspepsia
     Dosage: UNK, TID
     Route: 065
     Dates: start: 201911, end: 202007
  6. CLEBOPRIDE [Interacting]
     Active Substance: CLEBOPRIDE
     Dosage: 1 MILLIGRAM, ONCE A DAY
     Route: 065
  7. AMIODARONE [Interacting]
     Active Substance: AMIODARONE
     Indication: Hypertension
     Dosage: UNK
     Route: 065
  8. GABAPENTIN [Interacting]
     Active Substance: GABAPENTIN
     Indication: Myoclonus
     Dosage: UNK
     Route: 065
  9. RIVAROXABAN [Interacting]
     Active Substance: RIVAROXABAN
     Indication: Hypertension
     Dosage: UNK
     Route: 065
  10. SIMVASTATIN [Interacting]
     Active Substance: SIMVASTATIN
     Indication: Hypertension
     Dosage: UNK
     Route: 065
  11. VALERIAN [Interacting]
     Active Substance: VALERIAN
     Indication: Product used for unknown indication
     Dosage: UNK
     Route: 065
  12. HIDROCLOROTIAZIDA;VALSARTAN [Concomitant]
     Indication: Hypertension
     Dosage: UNK
     Route: 065
  13. ESOMEPRAZOLE [Concomitant]
     Active Substance: ESOMEPRAZOLE
     Indication: Product used for unknown indication
     Dosage: 60 MILLIGRAM, ONCE A DAY (20 MILLIGRAM, TID)
     Route: 065
  14. LERCANIDIPINE [Concomitant]
     Active Substance: LERCANIDIPINE
     Indication: Product used for unknown indication
     Dosage: UNK
     Route: 065
  15. VALSARTAN [Concomitant]
     Active Substance: VALSARTAN
     Indication: Product used for unknown indication
     Dosage: UNK (2.5/160 MILLIGRAM)
     Route: 065
  16. RIVAROXABAN [Concomitant]
     Active Substance: RIVAROXABAN
     Indication: Product used for unknown indication
     Dosage: UNKNOWN
     Route: 065

REACTIONS (4)
  - Drug interaction [Recovered/Resolved]
  - Tardive dyskinesia [Unknown]
  - Nausea [Unknown]
  - Tremor [Recovering/Resolving]

NARRATIVE: CASE EVENT DATE: 20200701
